FAERS Safety Report 7784363-5 (Version None)
Quarter: 2011Q3

REPORT INFORMATION
  Report Type: 
  Country: None (occurrence: None)
  Receive Date: 20110928
  Receipt Date: 20110922
  Transmission Date: 20111222
  Serious: Yes (Other)
  Sender: FDA-Public Use
  Company Number: PHEH2011US01552

PATIENT
  Sex: Male
  Weight: 56.236 kg

DRUGS (1)
  1. EXJADE [Suspect]
     Indication: ANAEMIA OF CHRONIC DISEASE
     Dosage: 1000 MG, DAILY
     Route: 048
     Dates: start: 20110622

REACTIONS (7)
  - DYSPNOEA [None]
  - HEARING IMPAIRED [None]
  - ASTHENIA [None]
  - DIARRHOEA [None]
  - VISUAL IMPAIRMENT [None]
  - POLLAKIURIA [None]
  - BLOOD TEST ABNORMAL [None]
